FAERS Safety Report 9194170 (Version 2)
Quarter: 2013Q3

REPORT INFORMATION
  Report Type: Report from Study
  Country: US (occurrence: US)
  Receive Date: 20130327
  Receipt Date: 20130719
  Transmission Date: 20140515
  Serious: Yes (Other)
  Sender: FDA-Public Use
  Company Number: PHEH2013US003208

PATIENT
  Age: 65 Year
  Sex: Male

DRUGS (14)
  1. TASIGNA [Suspect]
     Indication: CHRONIC MYELOID LEUKAEMIA
     Dosage: 300 MG, BID
     Route: 048
     Dates: start: 20110901
  2. TASIGNA [Suspect]
     Indication: NEOPLASM MALIGNANT
  3. GEMFIBROZIL [Concomitant]
  4. VALTREX [Concomitant]
  5. LIPITOR [Concomitant]
  6. RAPAMUNE [Concomitant]
  7. LASIX [Concomitant]
  8. POTASSIUM [Concomitant]
  9. CLONIDINE [Concomitant]
  10. COREG [Concomitant]
  11. MYCOPHENOLATE [Concomitant]
  12. LISINOPRIL [Concomitant]
  13. PREDNISONE [Concomitant]
  14. NEXUM [Concomitant]

REACTIONS (3)
  - Labyrinthitis [Unknown]
  - Liver function test abnormal [Not Recovered/Not Resolved]
  - Tenderness [Unknown]
